FAERS Safety Report 20014128 (Version 1)
Quarter: 2021Q4

REPORT INFORMATION
  Report Type: Report from Study
  Country: CA (occurrence: CA)
  Receive Date: 20211029
  Receipt Date: 20211029
  Transmission Date: 20220303
  Serious: Yes (Hospitalization)
  Sender: FDA-Public Use
  Company Number: CA-ASTRAZENECA-2021A780136

PATIENT
  Sex: Female

DRUGS (16)
  1. TRASTUZUMAB DERUXTECAN [Suspect]
     Active Substance: TRASTUZUMAB DERUXTECAN
     Indication: Breast cancer metastatic
     Dosage: 385 MG, ONCE EVERY 3 WK
     Route: 042
  2. FERROUS SULPHATE, IRON [Concomitant]
  3. CALCIUM [Concomitant]
     Active Substance: CALCIUM
  4. CEFADROXIL [Concomitant]
     Active Substance: CEFADROXIL
  5. CELEXA [Concomitant]
     Active Substance: CITALOPRAM HYDROBROMIDE
  6. CORTIF [Concomitant]
  7. ELIQUIS [Concomitant]
     Active Substance: APIXABAN
     Dosage: 3 MG
  8. LIPITOR [Concomitant]
     Active Substance: ATORVASTATIN CALCIUM
     Dosage: 10 MG
  9. MORPHINE SULFATE [Concomitant]
     Active Substance: MORPHINE SULFATE
     Dosage: 15 MG
  10. PANTOPRAZOLE SODIUM [Concomitant]
     Active Substance: PANTOPRAZOLE SODIUM
     Dosage: 40 MG
  11. POPSO [Concomitant]
  12. RITALIN [Concomitant]
     Active Substance: METHYLPHENIDATE HYDROCHLORIDE
  13. SENOKOT [Concomitant]
     Active Substance: SENNOSIDES
  14. SYNTHROID [Concomitant]
     Active Substance: LEVOTHYROXINE SODIUM
  15. WELLBUTRIN [Concomitant]
     Active Substance: BUPROPION HYDROCHLORIDE
     Dosage: 150 MG
  16. XGERVA [Concomitant]

REACTIONS (1)
  - Hospitalisation [Unknown]
